FAERS Safety Report 6451483-7 (Version None)
Quarter: 2009Q4

REPORT INFORMATION
  Report Type: 
  Country: None (occurrence: None)
  Receive Date: 20091123
  Receipt Date: 20090505
  Transmission Date: 20100525
  Serious: Yes (Hospitalization)
  Sender: FDA-Public Use
  Company Number: US-BRISTOL-MYERS SQUIBB COMPANY-14611537

PATIENT
  Age: 80 Year
  Sex: Female
  Weight: 48 kg

DRUGS (4)
  1. AVALIDE [Suspect]
     Indication: HYPERTENSION
     Dosage: 2 DF = 2 TABLETS.DOSE DECREASED TO 1 TAB/D.
     Dates: start: 20041001
  2. THYROID TAB [Concomitant]
     Dosage: THYROID PILL WAS TAKEN.
  3. ATENOLOL [Concomitant]
  4. BABY ASPIRIN [Concomitant]

REACTIONS (3)
  - DIZZINESS [None]
  - NEUROPATHY PERIPHERAL [None]
  - TRANSIENT ISCHAEMIC ATTACK [None]
